FAERS Safety Report 5124910-5 (Version None)
Quarter: 2006Q4

REPORT INFORMATION
  Report Type: 
  Country: None (occurrence: None)
  Receive Date: 20061011
  Receipt Date: 20060929
  Transmission Date: 20070319
  Serious: Yes (Hospitalization, Other)
  Sender: FDA-Public Use
  Company Number: 2006AC01826

PATIENT
  Age: 67 Year
  Sex: Female

DRUGS (5)
  1. SEROQUEL [Suspect]
     Indication: AGITATION
     Route: 048
     Dates: start: 20050719, end: 20060830
  2. SEROQUEL [Interacting]
     Route: 048
  3. SOLIAN [Interacting]
     Indication: AGGRESSION
     Route: 048
     Dates: start: 20040901, end: 20060830
  4. PROLOPA [Concomitant]
     Indication: PARKINSON'S DISEASE
     Route: 048
     Dates: start: 20000601
  5. PARLODEL [Concomitant]
     Indication: PARKINSON'S DISEASE
     Route: 048
     Dates: start: 20000601, end: 20060830

REACTIONS (2)
  - DRUG INTERACTION [None]
  - NEUROLEPTIC MALIGNANT SYNDROME [None]
